FAERS Safety Report 8015536-4 (Version None)
Quarter: 2011Q4

REPORT INFORMATION
  Report Type: 
  Country: None (occurrence: None)
  Receive Date: 20111230
  Receipt Date: 20111221
  Transmission Date: 20120403
  Serious: Yes (Hospitalization, Other)
  Sender: FDA-Public Use
  Company Number: US-SHIRE-ALL1-2011-05076

PATIENT
  Sex: Female
  Weight: 99.773 kg

DRUGS (8)
  1. AMOXICILLIN [Suspect]
     Indication: PAIN IN JAW
     Dosage: 500 MG, 1X/DAY:QD
     Route: 048
     Dates: start: 20110801, end: 20110801
  2. CARBATROL [Suspect]
     Indication: TRIGEMINAL NEURALGIA
     Dosage: 100 MG, 6 TIMES DAILY
     Route: 048
     Dates: start: 20110801
  3. CARVEDILOL [Concomitant]
     Indication: HYPERTENSION
     Dosage: 12.5 MG, 2X/DAY:BID
     Route: 048
     Dates: start: 20060101
  4. ULORIC [Concomitant]
     Indication: GOUT
     Dosage: 40 MG, 1X/DAY:QD
     Route: 048
     Dates: start: 20030101
  5. PRAVASTATIN [Concomitant]
     Indication: BLOOD CHOLESTEROL INCREASED
     Dosage: 40 MG, 1X/DAY:QD
     Route: 048
     Dates: start: 20010101
  6. OMEPRAZOLE [Concomitant]
     Indication: GASTROOESOPHAGEAL REFLUX DISEASE
     Dosage: 20 MG, 1X/DAY:QD
     Route: 048
     Dates: start: 20060101
  7. LOSARTAN POTASSIUM [Concomitant]
     Indication: RENAL FAILURE
     Dosage: 25 MG, 1X/DAY:QD
     Route: 048
     Dates: start: 20100101
  8. MUCINEX [Concomitant]
     Indication: RESPIRATORY TRACT CONGESTION
     Dosage: 600 MG, 1X/DAY:QD
     Route: 048
     Dates: start: 20060101

REACTIONS (5)
  - PARALYSIS [None]
  - DRUG CHEMICAL INCOMPATIBILITY [None]
  - CARDIAC FAILURE CONGESTIVE [None]
  - INSOMNIA [None]
  - HALLUCINATION [None]
